FAERS Safety Report 8877590 (Version 1)
Quarter: 2012Q4

REPORT INFORMATION
  Report Type: 
  Country: TR (occurrence: TR)
  Receive Date: 20121024
  Receipt Date: 20121024
  Transmission Date: 20130627
  Serious: Yes (Other)
  Sender: FDA-Public Use
  Company Number: TR-ROCHE-1147647

PATIENT
  Age: 47 Year
  Sex: Female

DRUGS (7)
  1. CAPECITABINE [Suspect]
     Indication: BREAST CANCER
     Route: 065
  2. PACLITAXEL [Concomitant]
     Route: 065
  3. DOXORUBICIN [Concomitant]
     Route: 065
  4. CYCLOPHOSPHAMIDE [Concomitant]
     Route: 065
  5. FILGRASTIM [Concomitant]
  6. TAMOXIFEN [Concomitant]
  7. ZOLEDRONIC ACID [Concomitant]

REACTIONS (3)
  - Blood glucose increased [Recovered/Resolved]
  - Lipids increased [Recovered/Resolved]
  - Blood triglycerides increased [Recovered/Resolved]
